FAERS Safety Report 18480023 (Version 1)
Quarter: 2020Q4

REPORT INFORMATION
  Report Type: Spontaneous
  Country: US (occurrence: US)
  Receive Date: 20201108
  Receipt Date: 20201108
  Transmission Date: 20210114
  Serious: Yes (Death)
  Sender: FDA-Public Use
  Company Number: None

PATIENT
  Age: 76 Year
  Sex: Male
  Weight: 60.71 kg

DRUGS (6)
  1. XGEVA [Suspect]
     Active Substance: DENOSUMAB
     Indication: PROSTATE CANCER
     Dosage: ?          OTHER FREQUENCY:MONTHLY;?
     Route: 058
     Dates: start: 20190509
  2. FOLIC ACID. [Concomitant]
     Active Substance: FOLIC ACID
  3. NEULASTA [Suspect]
     Active Substance: PEGFILGRASTIM
     Indication: PROSTATE CANCER
     Dosage: ?          OTHER FREQUENCY:EVERY 3 WEEKS;?
     Route: 058
     Dates: start: 20190925
  4. BICALUTAMIDE. [Concomitant]
     Active Substance: BICALUTAMIDE
  5. ELIGARD [Concomitant]
     Active Substance: LEUPROLIDE ACETATE
  6. THIAMINE. [Concomitant]
     Active Substance: THIAMINE

REACTIONS (1)
  - Death [None]

NARRATIVE: CASE EVENT DATE: 20201028
